FAERS Safety Report 8966994 (Version 2)
Quarter: 2013Q1

REPORT INFORMATION
  Report Type: Spontaneous
  Country: JP (occurrence: JP)
  Receive Date: 20121217
  Receipt Date: 20130220
  Transmission Date: 20140127
  Serious: Yes (Hospitalization, Disabling)
  Sender: FDA-Public Use
  Company Number: JP-ELI_LILLY_AND_COMPANY-JP201212001964

PATIENT
  Age: 20 Year
  Sex: Male
  Weight: 86 kg

DRUGS (3)
  1. ZYPREXA [Suspect]
     Indication: DEPRESSION
     Dosage: 2.5 MG, QD
     Route: 048
     Dates: start: 201206, end: 20121129
  2. PAXIL CR [Concomitant]
     Indication: DEPRESSION
     Dosage: 25 MG, QD
     Route: 048
     Dates: start: 201203
  3. RIVOTRIL [Concomitant]
     Dosage: 0.5 MG, BID
     Route: 048
     Dates: start: 201203

REACTIONS (6)
  - Disseminated intravascular coagulation [Recovered/Resolved]
  - Decubitus ulcer [Recovering/Resolving]
  - Peroneal nerve palsy [Not Recovered/Not Resolved]
  - Neuroleptic malignant syndrome [Recovered/Resolved]
  - Renal failure acute [Recovered/Resolved]
  - Diabetic ketoacidosis [Recovered/Resolved]
